FAERS Safety Report 17833379 (Version 2)
Quarter: 2020Q2

REPORT INFORMATION
  Report Type: Other
  Country: PT (occurrence: PT)
  Receive Date: 20200528
  Receipt Date: 20200606
  Transmission Date: 20200714
  Serious: Yes (Hospitalization, Other)
  Sender: FDA-Public Use
  Company Number: PT-MACLEODS PHARMACEUTICALS US LTD-MAC2020026574

PATIENT

DRUGS (5)
  1. ESCITALOPRAM [Suspect]
     Active Substance: ESCITALOPRAM OXALATE
     Indication: ANXIETY DISORDER
     Dosage: 10 MILLIGRAM
     Route: 065
  2. MEMANTINE. [Suspect]
     Active Substance: MEMANTINE
     Indication: DEMENTIA ALZHEIMER^S TYPE
     Dosage: UNK
     Route: 065
  3. DONEPEZIL. [Suspect]
     Active Substance: DONEPEZIL
     Indication: DEMENTIA ALZHEIMER^S TYPE
     Dosage: UNK
     Route: 065
  4. DARIFENACIN 7.5 MG [Suspect]
     Active Substance: DARIFENACIN
     Indication: PRODUCT USED FOR UNKNOWN INDICATION
     Dosage: 7.5 MILLIGRAM
     Route: 065
     Dates: start: 201603
  5. ALFUZOSIN [Suspect]
     Active Substance: ALFUZOSIN
     Indication: BENIGN PROSTATIC HYPERPLASIA
     Dosage: 10 MILLIGRAM
     Route: 065

REACTIONS (18)
  - Hyperphagia [Recovered/Resolved]
  - Urinary incontinence [Unknown]
  - Dry mouth [Unknown]
  - Weight decreased [Recovered/Resolved]
  - Prostatomegaly [Unknown]
  - Polydipsia [Recovered/Resolved]
  - Hypernatraemia [Recovered/Resolved]
  - Pollakiuria [Unknown]
  - Hyperglycaemic hyperosmolar nonketotic syndrome [Recovered/Resolved]
  - Hydronephrosis [Unknown]
  - Proteinuria [Recovered/Resolved]
  - Gastrointestinal disorder [Unknown]
  - Therapeutic response decreased [Unknown]
  - Pollakiuria [Unknown]
  - Delirium [Recovered/Resolved]
  - Ketonuria [Recovered/Resolved]
  - Pollakiuria [Recovered/Resolved]
  - Acute kidney injury [Recovered/Resolved]

NARRATIVE: CASE EVENT DATE: 20151123
